FAERS Safety Report 4567191-3 (Version None)
Quarter: 2005Q1

REPORT INFORMATION
  Report Type: 
  Country: None (occurrence: None)
  Receive Date: 20050201
  Receipt Date: 20041129
  Transmission Date: 20050727
  Serious: Yes (Other)
  Sender: FDA-Public Use
  Company Number: FR-GLAXOSMITHKLINE-B0358724A

PATIENT
  Age: 73 Year
  Sex: Female
  Weight: 50 kg

DRUGS (8)
  1. IMIGRANE [Suspect]
     Indication: MIGRAINE
     Dosage: 50MG SEE DOSAGE TEXT
     Route: 048
  2. TRAMADOL HCL [Concomitant]
     Indication: MIGRAINE
     Dosage: 50MG SIX TIMES PER DAY
     Route: 048
  3. SERC [Concomitant]
     Dosage: 3UD PER DAY
     Route: 048
  4. CLONAZEPAM [Concomitant]
     Route: 048
  5. MEPRONIZINE [Concomitant]
     Dosage: 2UD PER DAY
     Route: 048
  6. ESIDRIX [Concomitant]
     Dosage: 1UD PER DAY
     Route: 048
  7. LORAZEPAM [Concomitant]
     Dosage: 2.5MG THREE TIMES PER DAY
     Route: 048
  8. DUPHALAC [Concomitant]
     Dosage: 3UD PER DAY
     Route: 048

REACTIONS (3)
  - DRUG ABUSER [None]
  - MIGRAINE [None]
  - TREATMENT NONCOMPLIANCE [None]
